FAERS Safety Report 10485920 (Version 2)
Quarter: 2014Q4

REPORT INFORMATION
  Report Type: Spontaneous
  Country: ES (occurrence: ES)
  Receive Date: 20141001
  Receipt Date: 20141017
  Transmission Date: 20150528
  Serious: Yes (Hospitalization, Other)
  Sender: FDA-Public Use
  Company Number: ES-UCBSA-2014012973

PATIENT
  Age: 33 Year
  Sex: Female
  Weight: 53 kg

DRUGS (2)
  1. TEGRETOL [Suspect]
     Active Substance: CARBAMAZEPINE
     Indication: EPILEPSY
     Dosage: 800 MG PER DAY
     Route: 048
     Dates: start: 201306
  2. VIMPAT [Suspect]
     Active Substance: LACOSAMIDE
     Indication: EPILEPSY
     Dosage: 200 MG, 2X/DAY (BID)
     Route: 048
     Dates: start: 20140427

REACTIONS (2)
  - Pregnancy [Unknown]
  - Abortion spontaneous [Recovered/Resolved]

NARRATIVE: CASE EVENT DATE: 201406
